FAERS Safety Report 8319221-0 (Version None)
Quarter: 2012Q2

REPORT INFORMATION
  Report Type: 
  Country: None (occurrence: None)
  Receive Date: 20120427
  Receipt Date: 20120420
  Transmission Date: 20120825
  Serious: Yes (Other)
  Sender: FDA-Public Use
  Company Number: FR-MERCK-1204USA03725

PATIENT
  Age: 76 Year
  Sex: Female

DRUGS (10)
  1. FOSAMAX [Suspect]
     Indication: OSTEOPOROSIS
     Route: 048
     Dates: start: 20010101, end: 20090501
  2. CELECTOL [Concomitant]
     Route: 048
  3. BONIVA [Suspect]
     Indication: OSTEOPOROSIS
     Route: 048
     Dates: start: 20090501, end: 20120201
  4. PIASCLEDINE [Concomitant]
     Route: 048
  5. NEXIUM [Concomitant]
     Route: 065
  6. LECTIL [Concomitant]
     Route: 048
  7. LEXOMIL [Suspect]
     Route: 048
  8. RISPERDAL [Concomitant]
     Route: 048
  9. OROCAL D3 [Concomitant]
     Route: 048
  10. IRBESARTAN [Concomitant]
     Route: 048

REACTIONS (1)
  - OSTEONECROSIS [None]
